FAERS Safety Report 7238429-9 (Version None)
Quarter: 2011Q1

REPORT INFORMATION
  Report Type: 
  Country: None (occurrence: None)
  Receive Date: 20110119
  Receipt Date: 20110119
  Transmission Date: 20110831
  Serious: No
  Sender: FDA-Public Use
  Company Number: None

PATIENT
  Age: 61 Year
  Sex: Female
  Weight: 58.9676 kg

DRUGS (1)
  1. ALLER-TEC 10 MG PERRIGO FOR COSTCO WHOLESALE CORP [Suspect]
     Indication: MULTIPLE ALLERGIES

REACTIONS (6)
  - DISCOMFORT [None]
  - SLEEP DISORDER [None]
  - CONTUSION [None]
  - DRUG DEPENDENCE [None]
  - PRURITUS [None]
  - TINNITUS [None]
